FAERS Safety Report 4613818-7 (Version None)
Quarter: 2005Q1

REPORT INFORMATION
  Report Type: 
  Country: None (occurrence: None)
  Receive Date: 20050315
  Receipt Date: 20040112
  Transmission Date: 20050727
  Serious: Yes (Hospitalization)
  Sender: FDA-Public Use
  Company Number: 7240

PATIENT
  Age: 49 Year
  Sex: Male

DRUGS (3)
  1. LEUCOVORIN [Suspect]
     Dosage: 15 MG
     Route: 048
     Dates: start: 20031129, end: 20031208
  2. VITAMIN B12 [Suspect]
     Route: 048
     Dates: start: 20031129, end: 20031207
  3. SPIRONOLACTONE [Concomitant]

REACTIONS (1)
  - PYREXIA [None]
